FAERS Safety Report 4978619-9 (Version None)
Quarter: 2006Q2

REPORT INFORMATION
  Report Type: 
  Country: None (occurrence: None)
  Receive Date: 20060420
  Receipt Date: 20060106
  Transmission Date: 20061013
  Serious: Yes (Death, Hospitalization)
  Sender: FDA-Public Use
  Company Number: US-MERCK-0601USA00990

PATIENT
  Age: 74 Year
  Sex: Female
  Weight: 48 kg

DRUGS (8)
  1. VIOXX [Suspect]
     Indication: ARTHRALGIA
     Route: 048
     Dates: start: 20011201, end: 20031227
  2. ZOLOFT [Concomitant]
     Route: 065
  3. PEPCID [Concomitant]
     Route: 065
  4. SYNTHROID [Concomitant]
     Route: 065
  5. LOPRESSOR [Concomitant]
     Route: 065
  6. PLAVIX [Concomitant]
     Route: 065
  7. ZOCOR [Concomitant]
     Route: 065
  8. ATIVAN [Concomitant]
     Route: 065

REACTIONS (9)
  - BACK PAIN [None]
  - DYSPEPSIA [None]
  - GASTROOESOPHAGEAL REFLUX DISEASE [None]
  - HIATUS HERNIA [None]
  - LARGE INTESTINAL HAEMORRHAGE [None]
  - MYOCARDIAL INFARCTION [None]
  - PNEUMONIA [None]
  - ROAD TRAFFIC ACCIDENT [None]
  - STOMACH DISCOMFORT [None]
